FAERS Safety Report 22159916 (Version 1)
Quarter: 2023Q1

REPORT INFORMATION
  Report Type: Spontaneous
  Country: IR (occurrence: IR)
  Receive Date: 20230331
  Receipt Date: 20230331
  Transmission Date: 20230418
  Serious: Yes (Death, Hospitalization, Other)
  Sender: FDA-Public Use
  Company Number: IR-STERISCIENCE B.V.-2023-ST-001060

PATIENT
  Age: 47 Year
  Sex: Female
  Weight: 70 kg

DRUGS (10)
  1. VANCOMYCIN [Suspect]
     Active Substance: VANCOMYCIN
     Indication: COVID-19 pneumonia
     Dosage: 1.5 GRAM, BID
     Route: 042
  2. VANCOMYCIN [Suspect]
     Active Substance: VANCOMYCIN
     Dosage: 1 GRAM, BID
     Route: 042
  3. HEPARIN [Suspect]
     Active Substance: HEPARIN SODIUM
     Indication: COVID-19 pneumonia
     Dosage: 5000 INTERNATIONAL UNIT, EVERY 12 HOURS
     Route: 058
  4. HYDROXYCHLOROQUINE [Suspect]
     Active Substance: HYDROXYCHLOROQUINE
     Indication: COVID-19 pneumonia
     Dosage: 400 MILLIGRAM, BID
     Route: 048
  5. HYDROXYCHLOROQUINE [Suspect]
     Active Substance: HYDROXYCHLOROQUINE
     Dosage: 200 MILLIGRAM, BID
     Route: 048
  6. LOPINAVIR\RITONAVIR [Suspect]
     Active Substance: LOPINAVIR\RITONAVIR
     Indication: COVID-19 pneumonia
     Dosage: 2 DOSAGE FORM, BID
     Route: 048
  7. CEFEPIME [Suspect]
     Active Substance: CEFEPIME HYDROCHLORIDE
     Indication: COVID-19 pneumonia
     Dosage: 1 GRAM, TID, THREE TIMES A DAY
     Route: 042
  8. LEVOFLOXACIN [Suspect]
     Active Substance: LEVOFLOXACIN
     Indication: COVID-19 pneumonia
     Dosage: 750 MILLIGRAM, QD
     Route: 042
  9. IMIPENEM [Suspect]
     Active Substance: IMIPENEM
     Indication: COVID-19 pneumonia
     Dosage: 1 GRAM, TID, THREE TIMES A DAY
     Route: 065
  10. LOSARTAN [Concomitant]
     Active Substance: LOSARTAN
     Indication: Hypertension
     Dosage: 25 MILLIGRAM, BID
     Route: 065

REACTIONS (1)
  - Drug ineffective for unapproved indication [Fatal]
